FAERS Safety Report 10218729 (Version 1)
Quarter: 2014Q2

REPORT INFORMATION
  Report Type: Report from Study
  Country: US (occurrence: US)
  Receive Date: 20140605
  Receipt Date: 20140605
  Transmission Date: 20141212
  Serious: Yes (Other)
  Sender: FDA-Public Use
  Company Number: PHEH2014US011300

PATIENT
  Age: 7 Year
  Sex: Male

DRUGS (7)
  1. AFINITOR [Suspect]
     Indication: BRAIN NEOPLASM BENIGN
     Dosage: 5 MG, DAILY
     Route: 048
     Dates: start: 20110907
  2. SINGULAIR [Concomitant]
  3. ZYRTEC [Concomitant]
  4. PULMICORT [Concomitant]
  5. VIMPAT [Concomitant]
  6. L LYSINE COMPLEX [Concomitant]
  7. KEPPRA [Concomitant]

REACTIONS (1)
  - Asthma [Recovered/Resolved]
